FAERS Safety Report 5893239-X (Version None)
Quarter: 2008Q3

REPORT INFORMATION
  Report Type: 
  Country: None (occurrence: None)
  Receive Date: 20080922
  Receipt Date: 20080922
  Transmission Date: 20090109
  Serious: Yes (Other)
  Sender: FDA-Public Use
  Company Number: None

PATIENT
  Age: 34 Year
  Sex: Female
  Weight: 74.8435 kg

DRUGS (1)
  1. YAZ [Suspect]
     Indication: MOOD SWINGS
     Dosage: 1 PILL A DAY
     Dates: start: 20080325, end: 20080701

REACTIONS (6)
  - ANXIETY [None]
  - FEELING HOT [None]
  - HYPOAESTHESIA [None]
  - PALPITATIONS [None]
  - PARAESTHESIA [None]
  - WEIGHT INCREASED [None]
